FAERS Safety Report 24450431 (Version 1)
Quarter: 2024Q4

REPORT INFORMATION
  Report Type: Spontaneous
  Country: US (occurrence: US)
  Receive Date: 20241017
  Receipt Date: 20241017
  Transmission Date: 20250115
  Serious: Yes (Hospitalization, Other)
  Sender: PFIZER
  Company Number: US-PFIZER INC-PV202400131183

PATIENT
  Age: 48 Year
  Sex: Male

DRUGS (3)
  1. FUROSEMIDE [Suspect]
     Active Substance: FUROSEMIDE
     Indication: Generalised oedema
     Dosage: 20 MG
  2. OLMESARTAN [Concomitant]
     Active Substance: OLMESARTAN
     Indication: Glomerulonephritis membranous
     Dosage: 40 MG, DAILY
  3. PREDNISONE [Concomitant]
     Active Substance: PREDNISONE
     Indication: Glomerulonephritis membranous
     Dosage: 10 MG, DAILY

REACTIONS (2)
  - Pancreatitis acute [Recovering/Resolving]
  - Multiple organ dysfunction syndrome [Recovering/Resolving]
